FAERS Safety Report 7804941-4 (Version None)
Quarter: 2011Q4

REPORT INFORMATION
  Report Type: 
  Country: None (occurrence: None)
  Receive Date: 20111010
  Receipt Date: 20110929
  Transmission Date: 20120403
  Serious: Yes (Other)
  Sender: FDA-Public Use
  Company Number: US-JNJFOC-20111000582

PATIENT
  Sex: Male
  Weight: 97.07 kg

DRUGS (16)
  1. FOLIC ACID [Concomitant]
     Indication: RHEUMATOID ARTHRITIS
     Route: 048
  2. SPIRIVA [Concomitant]
     Indication: LUNG DISORDER
     Route: 048
     Dates: start: 20090101
  3. CALTRATE + VITAMIN D [Concomitant]
     Indication: NUTRITIONAL SUPPORT
     Dosage: 1 IN AM AND PM
     Route: 048
  4. PREDNISONE [Concomitant]
     Indication: BACK DISORDER
     Route: 048
     Dates: start: 20090101
  5. DIAZEPAM [Concomitant]
     Indication: PAIN
     Route: 048
     Dates: start: 20090101
  6. ALBUTEROL [Concomitant]
     Indication: LUNG DISORDER
     Route: 055
     Dates: start: 20090101
  7. REMICADE [Suspect]
     Indication: RHEUMATOID ARTHRITIS
     Route: 042
     Dates: start: 20110701
  8. MORPHINE [Concomitant]
     Indication: PAIN
     Route: 048
     Dates: start: 20090101
  9. OXYCODONE HCL [Concomitant]
     Indication: PAIN
     Route: 048
     Dates: start: 20090101
  10. METHOTREXATE [Concomitant]
     Indication: RHEUMATOID ARTHRITIS
     Route: 048
  11. AMBIEN [Concomitant]
     Indication: SLEEP DISORDER
     Route: 048
     Dates: start: 20090101
  12. CENTRUM SILVER [Concomitant]
     Indication: NUTRITIONAL SUPPORT
     Route: 048
  13. ADVAIR DISKUS 100/50 [Concomitant]
     Indication: LUNG DISORDER
     Route: 048
     Dates: start: 20090101
  14. FUROSEMIDE [Concomitant]
     Indication: FLUID RETENTION
     Route: 048
  15. OXYGEN [Concomitant]
     Indication: LUNG DISORDER
     Route: 045
  16. ASPIRIN [Concomitant]
     Indication: CARDIAC DISORDER
     Route: 048

REACTIONS (1)
  - MASS [None]
